FAERS Safety Report 18263282 (Version 1)
Quarter: 2020Q3

REPORT INFORMATION
  Report Type: Spontaneous
  Country: US (occurrence: US)
  Receive Date: 20200506
  Receipt Date: 20200506
  Transmission Date: 20201103
  Serious: Yes (Other)
  Sender: FDA-Public Use
  Company Number: None

PATIENT
  Age: 4 Decade
  Sex: Male

DRUGS (1)
  1. LOPINAVIR [Suspect]
     Active Substance: LOPINAVIR
     Indication: COVID-19
     Route: 048
     Dates: start: 2020

REACTIONS (5)
  - Blood albumin decreased [None]
  - Blood potassium decreased [None]
  - Product use in unapproved indication [None]
  - Lymphocyte morphology abnormal [None]
  - COVID-19 [None]
